FAERS Safety Report 5530799-2 (Version None)
Quarter: 2007Q4

REPORT INFORMATION
  Report Type: 
  Country: None (occurrence: None)
  Receive Date: 20071130
  Receipt Date: 20071116
  Transmission Date: 20080405
  Serious: Yes (Hospitalization)
  Sender: FDA-Public Use
  Company Number: GB-ROCHE-532423

PATIENT
  Age: 50 Year
  Sex: Male
  Weight: 79 kg

DRUGS (7)
  1. CAPECITABINE [Suspect]
     Route: 048
     Dates: start: 20071005
  2. CAPECITABINE [Suspect]
     Route: 048
     Dates: start: 20071009
  3. CISPLATIN [Suspect]
     Route: 042
     Dates: start: 20071005
  4. EPIRUBICIN [Suspect]
     Route: 042
     Dates: start: 20071005
  5. DEXAMETHASONE [Concomitant]
     Route: 048
     Dates: start: 20071005
  6. METOCLOPRAMIDE [Concomitant]
     Route: 048
     Dates: start: 20071005
  7. LOPERAMIDE HCL [Concomitant]
     Route: 048
     Dates: start: 20071005

REACTIONS (3)
  - ANXIETY [None]
  - CHEST PAIN [None]
  - PALPITATIONS [None]
